FAERS Safety Report 10396770 (Version 1)
Quarter: 2014Q3

REPORT INFORMATION
  Report Type: Spontaneous
  Country: FR (occurrence: FR)
  Receive Date: 20140820
  Receipt Date: 20140820
  Transmission Date: 20150326
  Serious: Yes (Hospitalization, Other)
  Sender: FDA-Public Use
  Company Number: FR-BRISTOL-MYERS SQUIBB COMPANY-21304340

PATIENT
  Age: 42 Year
  Sex: Male

DRUGS (2)
  1. COUMADINE [Suspect]
     Active Substance: WARFARIN SODIUM
     Indication: CEREBROVASCULAR ACCIDENT
     Dosage: SCORED TABLET ?3.75 MG DAILY
     Route: 048
     Dates: start: 2009, end: 20140724
  2. COUMADINE [Suspect]
     Active Substance: WARFARIN SODIUM
     Indication: CONGESTIVE CARDIOMYOPATHY
     Dosage: SCORED TABLET ?3.75 MG DAILY
     Route: 048
     Dates: start: 2009, end: 20140724

REACTIONS (3)
  - Overdose [Unknown]
  - Fall [Unknown]
  - Haematoma [Recovered/Resolved]

NARRATIVE: CASE EVENT DATE: 20140724
